FAERS Safety Report 19167280 (Version 3)
Quarter: 2021Q2

REPORT INFORMATION
  Report Type: Spontaneous
  Country: US (occurrence: US)
  Receive Date: 20210422
  Receipt Date: 20210622
  Transmission Date: 20210717
  Serious: No
  Sender: FDA-Public Use
  Company Number: US-THERATECHNOLOGIES INC.-2021-THE-TES-000116

PATIENT
  Sex: Male

DRUGS (2)
  1. EGRIFTA SV [Suspect]
     Active Substance: TESAMORELIN ACETATE
     Indication: PRODUCT USED FOR UNKNOWN INDICATION
     Dosage: UNK
     Route: 058
  2. EGRIFTA SV [Suspect]
     Active Substance: TESAMORELIN ACETATE
     Dosage: UNK
     Route: 058

REACTIONS (3)
  - Insomnia [Recovered/Resolved]
  - Decreased appetite [Unknown]
  - Contusion [Unknown]
